FAERS Safety Report 9401846 (Version 3)
Quarter: 2013Q4

REPORT INFORMATION
  Report Type: Spontaneous
  Country: DE (occurrence: DE)
  Receive Date: 20130716
  Receipt Date: 20131127
  Transmission Date: 20140711
  Serious: Yes (Other)
  Sender: FDA-Public Use
  Company Number: DE-JNJFOC-20130705971

PATIENT
  Sex: Female
  Weight: 67 kg

DRUGS (2)
  1. DUROGESIC SMAT [Suspect]
     Indication: TUMOUR PAIN
     Route: 062
  2. VOLTAREN RETARD [Concomitant]
     Indication: PAIN
     Route: 065

REACTIONS (3)
  - Serotonin syndrome [Recovered/Resolved]
  - Erythema [Unknown]
  - Labile blood pressure [Unknown]
